FAERS Safety Report 8068969-4 (Version None)
Quarter: 2012Q1

REPORT INFORMATION
  Report Type: 
  Country: None (occurrence: None)
  Receive Date: 20120118
  Receipt Date: 20120106
  Transmission Date: 20120608
  Serious: Yes (Death, Hospitalization)
  Sender: FDA-Public Use
  Company Number: 1158888

PATIENT
  Sex: Male

DRUGS (2)
  1. VANCOMYCIN HYDROCHLORIDE [Suspect]
     Indication: ENDOCARDITIS
  2. CUBICIN [Suspect]
     Indication: ENDOCARDITIS
     Dosage: 500 MG MILLIGRAM(S), INTRAVENOUS DRIP
     Route: 041

REACTIONS (4)
  - ENDOCARDITIS STAPHYLOCOCCAL [None]
  - DRUG INEFFECTIVE [None]
  - TREATMENT FAILURE [None]
  - CONDITION AGGRAVATED [None]
